FAERS Safety Report 9132958 (Version 1)
Quarter: 2013Q1

REPORT INFORMATION
  Report Type: Spontaneous
  Country: GB (occurrence: GB)
  Receive Date: 20130128
  Receipt Date: 20130128
  Transmission Date: 20140127
  Serious: Yes (Life-Threatening)
  Sender: FDA-Public Use
  Company Number: GB-UCBSA-076354

PATIENT
  Age: 84 Year
  Sex: Female

DRUGS (2)
  1. NEUPRO [Suspect]
     Indication: PARKINSON^S DISEASE
     Route: 062
     Dates: start: 20130106, end: 20130106
  2. AMOXICILLIN\CLAVULANATE POTASSIUM [Concomitant]
     Indication: SEPSIS
     Dosage: DOSE: 1.2 GRAM
     Route: 042
     Dates: start: 20130106

REACTIONS (3)
  - Hyperthermia [Recovering/Resolving]
  - Hypotension [Recovering/Resolving]
  - Rash generalised [Recovering/Resolving]
